FAERS Safety Report 8810405 (Version 2)
Quarter: 2013Q2

REPORT INFORMATION
  Report Type: Spontaneous
  Country: US (occurrence: US)
  Receive Date: 20120926
  Receipt Date: 20130410
  Transmission Date: 20140414
  Serious: No
  Sender: FDA-Public Use
  Company Number: US-009507513-1209USA007408

PATIENT
  Sex: Male
  Weight: 58.96 kg

DRUGS (4)
  1. MIRALAX [Suspect]
     Indication: PRODUCT USED FOR UNKNOWN INDICATION
     Dosage: 17 G, QD
     Route: 048
     Dates: start: 2007
  2. MIRALAX [Suspect]
     Indication: MEDICAL OBSERVATION
  3. ADDERALL TABLETS [Concomitant]
     Indication: ATTENTION DEFICIT/HYPERACTIVITY DISORDER
     Dosage: UNK, UNKNOWN
  4. INTUNIV [Concomitant]
     Indication: ATTENTION DEFICIT/HYPERACTIVITY DISORDER
     Dosage: UNK, UNKNOWN

REACTIONS (3)
  - Incorrect drug administration duration [Unknown]
  - Drug administered to patient of inappropriate age [Unknown]
  - Off label use [Unknown]
